FAERS Safety Report 5496872-2 (Version None)
Quarter: 2007Q4

REPORT INFORMATION
  Report Type: 
  Country: None (occurrence: None)
  Receive Date: 20071025
  Receipt Date: 20070829
  Transmission Date: 20080405
  Serious: No
  Sender: FDA-Public Use
  Company Number: A0677385A

PATIENT
  Age: 68 Year
  Sex: Female
  Weight: 47.3 kg

DRUGS (7)
  1. ADVAIR DISKUS 100/50 [Suspect]
     Indication: ASTHMA
     Route: 055
     Dates: start: 20000101
  2. SIMVASTATIN [Concomitant]
  3. ONE A DAY VITAMIN [Concomitant]
  4. CALCIUM [Concomitant]
  5. OMEGA 3 FATTY ACID [Concomitant]
  6. FOSAMAX [Concomitant]
  7. PREMPRO [Concomitant]

REACTIONS (2)
  - DYSPHONIA [None]
  - POSTNASAL DRIP [None]
